FAERS Safety Report 5716870-0 (Version None)
Quarter: 2008Q2

REPORT INFORMATION
  Report Type: 
  Country: None (occurrence: None)
  Receive Date: 20080422
  Receipt Date: 20080409
  Transmission Date: 20081010
  Serious: Yes (Other)
  Sender: FDA-Public Use
  Company Number: 2008JP000854

PATIENT
  Age: 42 Year
  Sex: Male
  Weight: 64 kg

DRUGS (5)
  1. PROGRAF [Suspect]
     Indication: BONE MARROW TRANSPLANT
     Dosage: 1.8 MG, BID, IV DRIP
     Route: 041
     Dates: start: 20060713, end: 20080327
  2. PROGRAF [Suspect]
     Indication: BONE MARROW TRANSPLANT
     Dosage: 1.8 MG, BID, ORAL
     Route: 048
     Dates: start: 20060713, end: 20080327
  3. NEORAL [Concomitant]
  4. VORICONAZOLE (VORICONAZOLE) [Concomitant]
  5. GANCICLOVIR [Concomitant]

REACTIONS (4)
  - BRONCHOPULMONARY ASPERGILLOSIS [None]
  - CYTOMEGALOVIRUS INFECTION [None]
  - NEPHROTIC SYNDROME [None]
  - RENAL IMPAIRMENT [None]
